FAERS Safety Report 9423590 (Version 2)
Quarter: 2013Q3

REPORT INFORMATION
  Report Type: Spontaneous
  Country: US (occurrence: US)
  Receive Date: 20130726
  Receipt Date: 20130814
  Transmission Date: 20140515
  Serious: No
  Sender: FDA-Public Use
  Company Number: US-PFIZER INC-2013218256

PATIENT
  Age: 42 Year
  Sex: Female

DRUGS (10)
  1. XELJANZ [Suspect]
     Indication: RHEUMATOID ARTHRITIS
     Dosage: 5 MG, 2X/DAY
     Route: 048
     Dates: start: 20130425
  2. PREDNISONE [Concomitant]
     Dosage: UNK
  3. METFORMIN [Concomitant]
     Dosage: UNK
  4. NORVASC [Concomitant]
     Dosage: UNK
  5. CITALOPRAM HYDROBROMIDE [Concomitant]
     Dosage: UNK
  6. LEVOTHROID [Concomitant]
     Dosage: UNK
  7. ALLEGRA [Concomitant]
     Dosage: UNK
  8. SIMCOR [Concomitant]
     Dosage: UNK
  9. VENTOLIN HFA [Concomitant]
     Dosage: UNK
  10. IBUPROFEN [Concomitant]
     Dosage: UNK

REACTIONS (3)
  - Drug ineffective [Unknown]
  - Nodule [Unknown]
  - Local swelling [Unknown]
